FAERS Safety Report 6462257-5 (Version None)
Quarter: 2009Q4

REPORT INFORMATION
  Report Type: 
  Country: None (occurrence: None)
  Receive Date: 20091130
  Receipt Date: 20091118
  Transmission Date: 20100525
  Serious: Yes (Hospitalization, Other)
  Sender: FDA-Public Use
  Company Number: US-TEVA-215710USA

PATIENT
  Sex: Female
  Weight: 70.824 kg

DRUGS (1)
  1. AVIANE-21 [Suspect]
     Dosage: 28 DAY REGIMEN
     Route: 048
     Dates: start: 20090920

REACTIONS (1)
  - ECTOPIC PREGNANCY [None]
